FAERS Safety Report 24366115 (Version 1)
Quarter: 2024Q3

REPORT INFORMATION
  Report Type: Spontaneous
  Country: US (occurrence: US)
  Receive Date: 20240926
  Receipt Date: 20240926
  Transmission Date: 20241017
  Serious: No
  Sender: PFIZER
  Company Number: US-PFIZER INC-PV202400125331

PATIENT
  Age: 68 Year
  Sex: Female

DRUGS (3)
  1. MORPHINE SULFATE [Interacting]
     Active Substance: MORPHINE SULFATE
     Dosage: UNK
  2. TUKYSA [Interacting]
     Active Substance: TUCATINIB
     Dosage: 300 MG, 2X/DAY
  3. OXYCODONE [Interacting]
     Active Substance: OXYCODONE
     Dosage: UNK

REACTIONS (1)
  - Drug interaction [Unknown]
